FAERS Safety Report 13472772 (Version 1)
Quarter: 2017Q2

REPORT INFORMATION
  Report Type: Spontaneous
  Country: US (occurrence: US)
  Receive Date: 20170424
  Receipt Date: 20170424
  Transmission Date: 20170830
  Serious: Yes (Other)
  Sender: FDA-Public Use
  Company Number: None

PATIENT
  Age: 10 Year
  Sex: Female
  Weight: 4.81 kg

DRUGS (2)
  1. BD U100 INSULIN SYRINGES [Concomitant]
  2. LANTUS [Suspect]
     Active Substance: INSULIN GLARGINE
     Indication: DIABETES MELLITUS
     Dosage: ?          OTHER STRENGTH:UNITS/ML;QUANTITY:10 ML;?
     Route: 058
     Dates: start: 20170418, end: 20170423

REACTIONS (3)
  - Product quality issue [None]
  - Drug ineffective [None]
  - Blood glucose increased [None]

NARRATIVE: CASE EVENT DATE: 20170418
